FAERS Safety Report 20127630 (Version 1)
Quarter: 2021Q4

REPORT INFORMATION
  Report Type: Spontaneous
  Country: FR (occurrence: FR)
  Receive Date: 20211129
  Receipt Date: 20211129
  Transmission Date: 20220303
  Serious: Yes (Hospitalization, Other)
  Sender: FDA-Public Use
  Company Number: FR-GLAXOSMITHKLINE-FR2016018362

PATIENT
  Age: 29 Year
  Sex: Male
  Weight: 61 kg

DRUGS (6)
  1. IBUPROFEN [Suspect]
     Active Substance: IBUPROFEN
     Indication: Torticollis
     Dosage: 1200 MILLIGRAM (1200 MG, SINGLE)
     Route: 048
     Dates: start: 20160110, end: 20160110
  2. CLOTIAZEPAM [Suspect]
     Active Substance: CLOTIAZEPAM
     Indication: Anxiety
     Dosage: 30 MILLIGRAM (30 MG, SINGLE)
     Route: 048
     Dates: start: 20160110, end: 20160110
  3. RILPIVIRINE [Suspect]
     Active Substance: RILPIVIRINE
     Indication: HIV infection
     Dosage: 25 MILLIGRAM, QD (25 MG, 1D (INDUCTION PERIOD))
     Route: 048
     Dates: start: 20141112, end: 20141208
  4. CABOTEGRAVIR [Suspect]
     Active Substance: CABOTEGRAVIR
     Indication: HIV infection
     Dosage: 600 MILLIGRAM, CYCLE (600 MG, CYC (MAINTENANCE PERIOD))
     Route: 030
     Dates: start: 20150106
  5. CABOTEGRAVIR [Suspect]
     Active Substance: CABOTEGRAVIR
     Dosage: 800 MILLIGRAM (800 MG, SINGLE (MAINTENANCE PERIOD))
     Route: 030
     Dates: start: 20141209, end: 20141209
  6. CABOTEGRAVIR [Suspect]
     Active Substance: CABOTEGRAVIR
     Indication: HIV infection
     Dosage: 30 MILLIGRAM, QD (30 MG, 1D (INDUCTION PERIOD))
     Route: 048
     Dates: start: 20140722, end: 20141208

REACTIONS (1)
  - Suicide attempt [Recovered/Resolved]

NARRATIVE: CASE EVENT DATE: 20160110
